FAERS Safety Report 8034661-5 (Version None)
Quarter: 2012Q1

REPORT INFORMATION
  Report Type: 
  Country: None (occurrence: None)
  Receive Date: 20120110
  Receipt Date: 20111229
  Transmission Date: 20120608
  Serious: Yes (Other)
  Sender: FDA-Public Use
  Company Number: US-ALLERGAN-1116989US

PATIENT

DRUGS (1)
  1. BOTOX COSMETIC [Suspect]
     Indication: MIGRAINE
     Dosage: UNK
     Dates: start: 20110101

REACTIONS (4)
  - EYE SWELLING [None]
  - LIP SWELLING [None]
  - WRONG TECHNIQUE IN DRUG USAGE PROCESS [None]
  - HYPERSENSITIVITY [None]
